FAERS Safety Report 4592937-8 (Version None)
Quarter: 2005Q1

REPORT INFORMATION
  Report Type: 
  Country: None (occurrence: None)
  Receive Date: 20050228
  Receipt Date: 20050127
  Transmission Date: 20050727
  Serious: Yes (Other)
  Sender: FDA-Public Use
  Company Number: FR-GLAXOSMITHKLINE-B0366082A

PATIENT
  Age: 38 Year
  Sex: Male

DRUGS (2)
  1. DEROXAT [Suspect]
     Indication: DEPRESSION
     Route: 048
     Dates: start: 20031101
  2. COAPROVEL [Concomitant]
     Indication: HYPERTENSION
     Dosage: 1UNIT PER DAY
     Route: 048
     Dates: start: 20040701

REACTIONS (5)
  - ANXIETY [None]
  - DRUG WITHDRAWAL SYNDROME [None]
  - HALLUCINATION, AUDITORY [None]
  - NAUSEA [None]
  - VERTIGO [None]
